FAERS Safety Report 7492437-1 (Version None)
Quarter: 2011Q2

REPORT INFORMATION
  Report Type: 
  Country: None (occurrence: None)
  Receive Date: 20110519
  Receipt Date: 20110504
  Transmission Date: 20111010
  Serious: No
  Sender: FDA-Public Use
  Company Number: US-B.I. PHARMACEUTICALS,INC./RIDGEFIELD-2011-BP-12394BP

PATIENT

DRUGS (4)
  1. PRADAXA [Suspect]
     Indication: ATRIAL FIBRILLATION
     Route: 048
     Dates: start: 20110407, end: 20110408
  2. ACCOLATE [Concomitant]
     Indication: ASTHMA
  3. ASTHMA MED [Concomitant]
     Indication: ASTHMA
  4. BYETTA [Concomitant]
     Indication: DIABETES MELLITUS

REACTIONS (5)
  - DIARRHOEA [None]
  - DIZZINESS [None]
  - CHILLS [None]
  - PYREXIA [None]
  - VOMITING [None]
